FAERS Safety Report 6368578-9 (Version None)
Quarter: 2009Q3

REPORT INFORMATION
  Report Type: 
  Country: None (occurrence: None)
  Receive Date: 20090922
  Receipt Date: 20090406
  Transmission Date: 20100115
  Serious: No
  Sender: FDA-Public Use
  Company Number: US-BRISTOL-MYERS SQUIBB COMPANY-14575088

PATIENT
  Age: 55 Year
  Sex: Male
  Weight: 79 kg

DRUGS (4)
  1. BUSPAR [Suspect]
     Indication: ANXIETY
     Dates: start: 20090403
  2. KLONOPIN [Concomitant]
  3. PAXIL [Concomitant]
  4. XALATAN [Concomitant]
     Dosage: EYE DROPS

REACTIONS (4)
  - ABDOMINAL PAIN UPPER [None]
  - AGITATION [None]
  - DIARRHOEA [None]
  - NAUSEA [None]
